FAERS Safety Report 5215263-2 (Version None)
Quarter: 2007Q1

REPORT INFORMATION
  Report Type: 
  Country: None (occurrence: None)
  Receive Date: 20070117
  Receipt Date: 20070109
  Transmission Date: 20070707
  Serious: Yes (Death, Life-Threatening, Other)
  Sender: FDA-Public Use
  Company Number: GXKR2007GB00620

PATIENT
  Age: 83 Year
  Sex: Female

DRUGS (7)
  1. WARFARIN SODIUM [Suspect]
     Indication: DEEP VEIN THROMBOSIS
  2. DAKTARIN ORAL GEL (MICONAZOLE) GEL [Suspect]
     Indication: ORAL CANDIDIASIS
     Dosage: 1 DF, QID, ORAL
     Route: 048
     Dates: start: 20060814, end: 20060821
  3. ATENOLOL [Concomitant]
  4. BUMETANIDE [Concomitant]
  5. LEVOTHYROXINE SODIUM [Concomitant]
  6. LISINOPRIL [Concomitant]
  7. ACETAMINOPHEN [Concomitant]

REACTIONS (8)
  - DRUG INTERACTION [None]
  - FALL [None]
  - GASTROINTESTINAL HAEMORRHAGE [None]
  - HAEMARTHROSIS [None]
  - INTERNATIONAL NORMALISED RATIO INCREASED [None]
  - JOINT DISLOCATION [None]
  - OESOPHAGEAL ULCER [None]
  - UPPER LIMB FRACTURE [None]
